FAERS Safety Report 24620200 (Version 2)
Quarter: 2024Q4

REPORT INFORMATION
  Report Type: Report from Study
  Country: US (occurrence: US)
  Receive Date: 20241114
  Receipt Date: 20241230
  Transmission Date: 20250114
  Serious: Yes (Disabling, Other)
  Sender: UCB
  Company Number: US-UCBSA-2024058430

PATIENT
  Age: 61 Year
  Sex: Female

DRUGS (1)
  1. LACOSAMIDE [Suspect]
     Active Substance: LACOSAMIDE
     Indication: Seizure
     Dosage: 200 MILLIGRAM, 2X/DAY (BID)

REACTIONS (4)
  - Cerebrovascular accident [Unknown]
  - Spinal cord injury [Unknown]
  - Electric shock sensation [Unknown]
  - Memory impairment [Not Recovered/Not Resolved]

NARRATIVE: CASE EVENT DATE: 20240822
